FAERS Safety Report 9332841 (Version 2)
Quarter: 2013Q4

REPORT INFORMATION
  Report Type: Spontaneous
  Country: US (occurrence: US)
  Receive Date: 20130606
  Receipt Date: 20131120
  Transmission Date: 20140711
  Serious: Yes (Hospitalization)
  Sender: FDA-Public Use
  Company Number: US-B.I. PHARMACEUTICALS,INC./RIDGEFIELD-2013-BI-15768BP

PATIENT
  Age: 72 Year
  Sex: Female
  Weight: 62.14 kg

DRUGS (12)
  1. PRADAXA [Suspect]
     Indication: ANTICOAGULANT THERAPY
     Dates: start: 20110408, end: 20120609
  2. PRADAXA [Suspect]
     Indication: ATRIAL FIBRILLATION
  3. XANAX [Concomitant]
     Route: 048
  4. ASPIRIN [Concomitant]
     Dosage: 81 MG
  5. LIPITOR [Concomitant]
     Dosage: 40 MG
  6. LASIX [Concomitant]
     Dosage: 40 MG
  7. COMBIVENT [Concomitant]
     Dosage: 4 PUF
  8. DILTIAZEM [Concomitant]
     Dosage: 120 MG
     Route: 048
  9. SYNTHROID [Concomitant]
     Dosage: 100 MCG
  10. NEXIUM [Concomitant]
     Dosage: 80 MG
  11. LISINOPRIL [Concomitant]
     Dosage: 20 MG
  12. POTASSIUM CHLORIDE [Concomitant]
     Dosage: 20 MEQ

REACTIONS (4)
  - Gastrointestinal haemorrhage [Recovered/Resolved]
  - Coagulopathy [Recovered/Resolved]
  - Anaemia [Unknown]
  - Haemorrhagic stroke [Unknown]
